FAERS Safety Report 7511056-1 (Version None)
Quarter: 2011Q2

REPORT INFORMATION
  Report Type: 
  Country: None (occurrence: None)
  Receive Date: 20110531
  Receipt Date: 20110524
  Transmission Date: 20111010
  Serious: Yes (Death, Hospitalization, Other)
  Sender: FDA-Public Use
  Company Number: JP-ELI_LILLY_AND_COMPANY-JP201104002097

PATIENT
  Sex: Female
  Weight: 55 kg

DRUGS (13)
  1. PRIMPERAN TAB [Concomitant]
     Indication: PROPHYLAXIS OF NAUSEA AND VOMITING
     Dosage: 15 MG, QD
     Route: 048
     Dates: start: 20101126, end: 20110317
  2. LENDORMIN [Concomitant]
     Indication: INSOMNIA
     Dosage: 0.25 MG, QD
     Route: 048
     Dates: start: 20110308, end: 20110317
  3. GEMCITABINE HYDROCHLORIDE [Suspect]
     Dosage: 1200 MG, UNK
     Route: 042
     Dates: start: 20101117, end: 20110310
  4. OTHER PHARMA COMPANY INV DRUG [Suspect]
     Indication: PANCREATIC CARCINOMA NON-RESECTABLE
     Dosage: 1.0 MG, WEEKLY (1/W)
     Route: 058
     Dates: start: 20101020, end: 20110315
  5. ETODOLAC [Concomitant]
     Indication: PAIN MANAGEMENT
     Dosage: 400 MG, QD
     Route: 048
     Dates: start: 20110222, end: 20110317
  6. CANDESARTAN CILEXETIL [Concomitant]
     Indication: HYPERTENSION
     Dosage: 8 MG, QD
     Route: 048
     Dates: end: 20110317
  7. ALOXI [Concomitant]
     Indication: PROPHYLAXIS OF NAUSEA AND VOMITING
     Dosage: 0.75 MG, QD
     Route: 042
     Dates: start: 20110222, end: 20110301
  8. URSO 250 [Concomitant]
     Indication: CHOLESTASIS
     Dosage: 300 MG, QD
     Route: 048
     Dates: start: 20101124, end: 20110317
  9. BIO-THREE [Concomitant]
     Indication: DISBACTERIOSIS
     Dosage: 3 G, QD
     Route: 048
     Dates: start: 20110104, end: 20110317
  10. OMEPRAZOLE [Concomitant]
     Indication: REFLUX OESOPHAGITIS
     Dosage: 20 MG, QD
     Route: 048
     Dates: start: 20101025, end: 20110317
  11. GEMCITABINE HYDROCHLORIDE [Suspect]
     Indication: PANCREATIC CARCINOMA NON-RESECTABLE
     Dosage: 1500 MG, UNK
     Route: 042
     Dates: start: 20101020, end: 20101116
  12. PROMAC [Concomitant]
     Indication: DYSGEUSIA
     Dosage: 150 MG, QD
     Route: 048
     Dates: start: 20101025, end: 20110317
  13. ROZEREM [Concomitant]
     Indication: INSOMNIA
     Dosage: 8 MG, QD
     Route: 048
     Dates: start: 20110222, end: 20110317

REACTIONS (2)
  - INTERSTITIAL LUNG DISEASE [None]
  - CHOLANGITIS SUPPURATIVE [None]
